FAERS Safety Report 13501675 (Version 5)
Quarter: 2017Q2

REPORT INFORMATION
  Report Type: Spontaneous
  Country: FR (occurrence: FR)
  Receive Date: 20170501
  Receipt Date: 20170626
  Transmission Date: 20170830
  Serious: Yes (Death, Hospitalization)
  Sender: FDA-Public Use
  Company Number: PHHY2017FR063551

PATIENT
  Age: 28 Year
  Sex: Female
  Weight: 55 kg

DRUGS (12)
  1. COSENTYX [Suspect]
     Active Substance: SECUKINUMAB
     Dosage: 2 DF, QD
     Route: 058
     Dates: start: 20170217, end: 20170217
  2. IMOVANE [Concomitant]
     Active Substance: ZOPICLONE
     Indication: INSOMNIA
     Route: 065
  3. VITAMIN B12 [Concomitant]
     Active Substance: CYANOCOBALAMIN
     Indication: VITAMIN SUPPLEMENTATION
     Route: 065
  4. COSENTYX [Suspect]
     Active Substance: SECUKINUMAB
     Dosage: 2 DF, QD
     Route: 058
     Dates: start: 20170303, end: 20170303
  5. SERESTA [Suspect]
     Active Substance: OXAZEPAM
     Indication: WITHDRAWAL SYNDROME
     Route: 065
  6. DEROXAT [Concomitant]
     Active Substance: PAROXETINE HYDROCHLORIDE
     Indication: DEPRESSION
     Dosage: LONG-TERM THERAPY
     Route: 048
  7. EFFEXOR [Concomitant]
     Active Substance: VENLAFAXINE HYDROCHLORIDE
     Indication: ANXIETY
     Route: 065
  8. FOLIC ACID. [Concomitant]
     Active Substance: FOLIC ACID
     Indication: VITAMIN SUPPLEMENTATION
     Route: 065
  9. COSENTYX [Suspect]
     Active Substance: SECUKINUMAB
     Dosage: 2 DF, QD
     Route: 058
     Dates: start: 20170224, end: 20170224
  10. COSENTYX [Suspect]
     Active Substance: SECUKINUMAB
     Indication: PSORIASIS
     Dosage: 2 DF, QD
     Route: 058
     Dates: start: 20170130, end: 20170203
  11. COSENTYX [Suspect]
     Active Substance: SECUKINUMAB
     Dosage: 2 DF, QD
     Route: 058
     Dates: start: 20170210, end: 20170210
  12. COSENTYX [Suspect]
     Active Substance: SECUKINUMAB
     Dosage: 2 DF, QD
     Route: 058
     Dates: start: 20170331, end: 20170331

REACTIONS (4)
  - Lung infection [Fatal]
  - Weight decreased [Fatal]
  - Septic shock [Fatal]
  - Cough [Fatal]

NARRATIVE: CASE EVENT DATE: 201702
